FAERS Safety Report 4334997-5 (Version None)
Quarter: 2004Q2

REPORT INFORMATION
  Report Type: 
  Country: None (occurrence: None)
  Receive Date: 20040408
  Receipt Date: 20040329
  Transmission Date: 20050107
  Serious: Yes (Hospitalization)
  Sender: FDA-Public Use
  Company Number: PHRM2004FR01406

PATIENT
  Sex: Male

DRUGS (5)
  1. FRACTAL [Suspect]
     Indication: HYPERCHOLESTEROLAEMIA
     Route: 048
     Dates: end: 20040224
  2. ROCEPHIN [Suspect]
     Indication: LUNG DISORDER
     Dates: start: 20040217, end: 20040222
  3. TAVANIC [Suspect]
     Route: 048
     Dates: start: 20040223, end: 20040224
  4. LODOZ [Suspect]
     Indication: HYPERTENSION
     Route: 048
     Dates: end: 20040224
  5. KETEK [Suspect]
     Route: 048
     Dates: start: 20040223, end: 20040224

REACTIONS (8)
  - C-REACTIVE PROTEIN INCREASED [None]
  - CHEST X-RAY ABNORMAL [None]
  - CHLAMYDIAL INFECTION [None]
  - INFLAMMATION [None]
  - LEUKOCYTOSIS [None]
  - LUNG DISORDER [None]
  - OEDEMA PERIPHERAL [None]
  - PURPURA [None]
